FAERS Safety Report 6740802-X (Version None)
Quarter: 2010Q2

REPORT INFORMATION
  Report Type: 
  Country: None (occurrence: None)
  Receive Date: 20100525
  Receipt Date: 20100525
  Transmission Date: 20101027
  Serious: No
  Sender: FDA-Public Use
  Company Number: None

PATIENT
  Sex: Male
  Weight: 63.7 kg

DRUGS (2)
  1. CISPLATIN [Suspect]
     Dosage: 136 MG
  2. ETOPOSIDE [Suspect]
     Dosage: 510 MG

REACTIONS (1)
  - NEUTROPHIL COUNT DECREASED [None]
